FAERS Safety Report 11236012 (Version 3)
Quarter: 2015Q3

REPORT INFORMATION
  Report Type: Spontaneous
  Country: US (occurrence: US)
  Receive Date: 20150702
  Receipt Date: 20150812
  Transmission Date: 20151125
  Serious: Yes (Life-Threatening, Hospitalization, Disabling)
  Sender: FDA-Public Use
  Company Number: US-JNJFOC-20150622777

PATIENT
  Sex: Male

DRUGS (7)
  1. LIPITOR [Concomitant]
     Active Substance: ATORVASTATIN CALCIUM
     Route: 065
  2. ASPIRIN. [Concomitant]
     Active Substance: ASPIRIN
     Route: 065
  3. ATORVASTATIN [Concomitant]
     Active Substance: ATORVASTATIN
     Dates: start: 201205, end: 201502
  4. BENICAR [Concomitant]
     Active Substance: OLMESARTAN MEDOXOMIL
     Dates: start: 201504, end: 201506
  5. INVOKANA [Suspect]
     Active Substance: CANAGLIFLOZIN
     Indication: TYPE 2 DIABETES MELLITUS
     Route: 048
     Dates: start: 20140917, end: 20150519
  6. JANUMET [Concomitant]
     Active Substance: METFORMIN HYDROCHLORIDE\SITAGLIPTIN PHOSPHATE
     Dosage: 50-1000 MG
     Route: 065
     Dates: start: 201101, end: 201505
  7. TRICOR [Concomitant]
     Active Substance: FENOFIBRATE
     Dates: start: 201101, end: 201506

REACTIONS (7)
  - Prostatic abscess [Recovering/Resolving]
  - Septic shock [Recovering/Resolving]
  - Cystitis [Recovering/Resolving]
  - Fungal infection [Unknown]
  - Apparent death [Unknown]
  - Pyelonephritis [Recovering/Resolving]
  - Genital infection fungal [Recovering/Resolving]
